FAERS Safety Report 9400335 (Version 1)
Quarter: 2013Q3

REPORT INFORMATION
  Report Type: Spontaneous
  Country: US (occurrence: US)
  Receive Date: 20130715
  Receipt Date: 20130715
  Transmission Date: 20140515
  Serious: Yes (Hospitalization)
  Sender: FDA-Public Use
  Company Number: PHHY2013US072672

PATIENT
  Age: 12 Year
  Sex: Female

DRUGS (3)
  1. PREDNISONE [Suspect]
     Indication: IMMUNOSUPPRESSION
  2. TACROLIMUS [Suspect]
     Indication: IMMUNOSUPPRESSION
  3. SIROLIMUS [Suspect]
     Indication: IMMUNOSUPPRESSION

REACTIONS (5)
  - Aplasia pure red cell [Recovering/Resolving]
  - Erythema infectiosum [Recovering/Resolving]
  - Pyrexia [Recovering/Resolving]
  - Decreased appetite [Recovering/Resolving]
  - Abdominal pain [Recovering/Resolving]
